FAERS Safety Report 10646200 (Version 1)
Quarter: 2014Q4

REPORT INFORMATION
  Report Type: Spontaneous
  Country: US (occurrence: None)
  Receive Date: 20141202
  Receipt Date: 20141202
  Transmission Date: 20150529
  Serious: No
  Sender: FDA-Public Use
  Company Number: 2014T5US003790

PATIENT

DRUGS (4)
  1. METFORMIN [Suspect]
     Active Substance: METFORMIN HYDROCHLORIDE
  2. DIPEPTIDYL PEPTIDASE 4 (DPP-4) INHIBITORS ( ) [Suspect]
     Active Substance: UNSPECIFIED INGREDIENT
  3. OSENI [Suspect]
     Active Substance: ALOGLIPTIN BENZOATE\PIOGLITAZONE HYDROCHLORIDE
  4. PIOGLITAZONE (PIOGLITAZONE HYDROCHLORIDE)(TABLETS) [Suspect]
     Active Substance: PIOGLITAZONE

REACTIONS (2)
  - Blood glucose increased [None]
  - Drug interaction [None]
